FAERS Safety Report 17002884 (Version 2)
Quarter: 2020Q1

REPORT INFORMATION
  Report Type: Spontaneous
  Country: US (occurrence: US)
  Receive Date: 20191107
  Receipt Date: 20200104
  Transmission Date: 20200409
  Serious: Yes (Life-Threatening, Hospitalization, Other)
  Sender: FDA-Public Use
  Company Number: US-DRREDDYS-USA/USA/19/0115760

PATIENT
  Age: 40 Year
  Sex: Male

DRUGS (2)
  1. DEXAMETHASONE SODIUM PHOSPHATE INJECTION, 4 MG/ML [Suspect]
     Active Substance: DEXAMETHASONE SODIUM PHOSPHATE
     Indication: ASTROCYTOMA
  2. LEVETIRACETAM. [Concomitant]
     Active Substance: LEVETIRACETAM
     Indication: SEIZURE

REACTIONS (10)
  - Pneumonia streptococcal [Recovering/Resolving]
  - Cytomegalovirus infection [Recovering/Resolving]
  - Varicella zoster virus infection [Recovering/Resolving]
  - Acute respiratory distress syndrome [Recovering/Resolving]
  - Strongyloidiasis [Recovering/Resolving]
  - Small intestinal obstruction [Recovering/Resolving]
  - Inappropriate antidiuretic hormone secretion [Recovering/Resolving]
  - Seizure [Recovering/Resolving]
  - Herpes simplex [Recovering/Resolving]
  - Meningitis viral [Recovering/Resolving]
